FAERS Safety Report 24459699 (Version 1)
Quarter: 2024Q4

REPORT INFORMATION
  Report Type: Spontaneous
  Country: JP (occurrence: JP)
  Receive Date: 20241018
  Receipt Date: 20241018
  Transmission Date: 20250114
  Serious: No
  Sender: ROCHE
  Company Number: JP-ROCHE-3557347

PATIENT
  Age: 56 Year
  Sex: Female

DRUGS (4)
  1. RITUXAN [Suspect]
     Active Substance: RITUXIMAB
     Indication: Castleman^s disease
     Route: 041
  2. TOCILIZUMAB [Concomitant]
     Active Substance: TOCILIZUMAB
     Indication: Rheumatoid arthritis
     Route: 058
  3. TOCILIZUMAB [Concomitant]
     Active Substance: TOCILIZUMAB
     Route: 058
  4. PREDNISOLONE [Concomitant]
     Active Substance: PREDNISOLONE

REACTIONS (2)
  - Pneumocystis jirovecii pneumonia [Unknown]
  - Off label use [Unknown]
